FAERS Safety Report 14572656 (Version 6)
Quarter: 2020Q3

REPORT INFORMATION
  Report Type: Report from Study
  Country: US (occurrence: US)
  Receive Date: 20180226
  Receipt Date: 20200903
  Transmission Date: 20201102
  Serious: Yes (Other)
  Sender: FDA-Public Use
  Company Number: PHEH2018US007728

PATIENT
  Age: 76 Year
  Sex: Female

DRUGS (2)
  1. ENTRESTO [Suspect]
     Active Substance: SACUBITRIL\VALSARTAN
     Indication: CARDIAC FAILURE CONGESTIVE
     Dosage: UNK UNK,  (49/51 MG) BID
     Route: 048
     Dates: start: 2019
  2. ENTRESTO [Suspect]
     Active Substance: SACUBITRIL\VALSARTAN
     Indication: CARDIAC FAILURE

REACTIONS (6)
  - Allergic sinusitis [Not Recovered/Not Resolved]
  - Chronic obstructive pulmonary disease [Unknown]
  - Nasopharyngitis [Unknown]
  - Sinus headache [Recovered/Resolved]
  - Cardiac failure [Unknown]
  - Stress [Recovering/Resolving]

NARRATIVE: CASE EVENT DATE: 2019
